FAERS Safety Report 8540586-9 (Version None)
Quarter: 2012Q3

REPORT INFORMATION
  Report Type: 
  Country: None (occurrence: None)
  Receive Date: 20120726
  Receipt Date: 20110804
  Transmission Date: 20120928
  Serious: No
  Sender: FDA-Public Use
  Company Number: US-ASTRAZENECA-2011SE47016

PATIENT
  Age: 45 Year
  Sex: Female

DRUGS (8)
  1. ASPIR-81 PO [Concomitant]
  2. FISH OIL [Concomitant]
  3. SEROQUEL XR [Suspect]
     Route: 048
  4. ERGOCALCIFEROL [Concomitant]
  5. PLAVIX [Concomitant]
  6. SPIRIVA [Concomitant]
  7. PROAIR HFA [Concomitant]
     Indication: WHEEZING
  8. CRESTOR [Suspect]
     Route: 048
     Dates: start: 20110311

REACTIONS (7)
  - VITAMIN D DECREASED [None]
  - MUSCULOSKELETAL PAIN [None]
  - NECK PAIN [None]
  - DYSLIPIDAEMIA [None]
  - PAIN [None]
  - CARPAL TUNNEL SYNDROME [None]
  - DYSPNOEA [None]
